FAERS Safety Report 23967531 (Version 4)
Quarter: 2024Q3

REPORT INFORMATION
  Report Type: Spontaneous
  Country: DE (occurrence: DE)
  Receive Date: 20240612
  Receipt Date: 20240715
  Transmission Date: 20241017
  Serious: Yes (Life-Threatening, Hospitalization, Other)
  Sender: MSN LABORATORIES
  Company Number: DE-MSNLABS-2024MSNSPO01208

PATIENT

DRUGS (11)
  1. PREGABALIN [Suspect]
     Active Substance: PREGABALIN
     Indication: Neuralgia
     Dosage: 75 MG TWO TIMES A DAY
     Route: 048
     Dates: start: 20230930, end: 20231215
  2. PREGABALIN [Suspect]
     Active Substance: PREGABALIN
     Indication: Burning sensation
     Dosage: TAPERING THERAPY
     Route: 048
     Dates: start: 20231206, end: 20231226
  3. PREGABALIN [Suspect]
     Active Substance: PREGABALIN
     Indication: Polyneuropathy
     Dosage: PREGABALIN 25 IN THE MORNING AND PREGABALIN 75 IN THE EVENING RESUMED
     Route: 048
  4. PREGABALIN [Suspect]
     Active Substance: PREGABALIN
     Indication: Burning sensation
     Route: 048
     Dates: start: 20231207, end: 20240131
  5. PREGABALIN [Suspect]
     Active Substance: PREGABALIN
     Indication: Polyneuropathy
     Route: 048
     Dates: start: 20231216
  6. PREGABALIN [Suspect]
     Active Substance: PREGABALIN
     Indication: Burning sensation
     Route: 048
     Dates: start: 20231024, end: 20231207
  7. PREGABALIN [Suspect]
     Active Substance: PREGABALIN
     Indication: Polyneuropathy
  8. RAMIPRIL [Concomitant]
     Active Substance: RAMIPRIL
     Route: 065
  9. LEVOTHYROXINE SODIUM\POTASSIUM IODIDE [Concomitant]
     Active Substance: LEVOTHYROXINE SODIUM\POTASSIUM IODIDE
     Route: 065
  10. PYRIDOXINE HYDROCHLORIDE [Concomitant]
     Active Substance: PYRIDOXINE HYDROCHLORIDE
     Route: 065
  11. EUTHYROX [Concomitant]
     Active Substance: LEVOTHYROXINE SODIUM
     Indication: Product used for unknown indication
     Dosage: 1-0-0
     Route: 065

REACTIONS (38)
  - Seizure [Recovered/Resolved with Sequelae]
  - Loss of consciousness [Recovering/Resolving]
  - Drug withdrawal convulsions [Recovered/Resolved]
  - Syncope [Recovered/Resolved with Sequelae]
  - Withdrawal syndrome [Recovering/Resolving]
  - Myoclonus [Recovered/Resolved with Sequelae]
  - Stupor [Recovered/Resolved with Sequelae]
  - Contusion [Recovered/Resolved]
  - Musculoskeletal stiffness [Recovering/Resolving]
  - Fall [Recovering/Resolving]
  - Skin discolouration [Recovered/Resolved]
  - Palpitations [Recovering/Resolving]
  - Restlessness [Recovering/Resolving]
  - Tension [Recovering/Resolving]
  - Respiratory rate increased [Recovering/Resolving]
  - Limb injury [Recovering/Resolving]
  - Mobility decreased [Recovering/Resolving]
  - Bone contusion [Not Recovered/Not Resolved]
  - Panic attack [Recovering/Resolving]
  - Haematoma [Recovering/Resolving]
  - Gait disturbance [Recovering/Resolving]
  - Muscular weakness [Recovering/Resolving]
  - Pain in extremity [Recovered/Resolved]
  - Thinking abnormal [Unknown]
  - Feeling cold [Not Recovered/Not Resolved]
  - Hepatic enzyme increased [Unknown]
  - Depressed mood [Unknown]
  - Muscle spasms [Recovering/Resolving]
  - Tremor [Recovering/Resolving]
  - Dizziness [Recovering/Resolving]
  - Asthenia [Recovering/Resolving]
  - Apathy [Recovering/Resolving]
  - Pain [Recovering/Resolving]
  - Myalgia [Recovering/Resolving]
  - Somnolence [Unknown]
  - Peripheral swelling [Recovered/Resolved]
  - Disturbance in attention [Unknown]
  - Urinary incontinence [Recovered/Resolved]

NARRATIVE: CASE EVENT DATE: 20230301
